FAERS Safety Report 5210643-3 (Version None)
Quarter: 2007Q1

REPORT INFORMATION
  Report Type: 
  Country: None (occurrence: None)
  Receive Date: 20070117
  Receipt Date: 20070110
  Transmission Date: 20070707
  Serious: No
  Sender: FDA-Public Use
  Company Number: GB-BAXTER-2007BH000281

PATIENT
  Sex: Female

DRUGS (1)
  1. TISSUCOL/TISSEEL KIT STIM4 [Suspect]
     Indication: VASCULAR PSEUDOANEURYSM
     Dosage: DOSE UNIT:UNKNOWN
     Dates: start: 20070109, end: 20070109

REACTIONS (1)
  - PYREXIA [None]
